FAERS Safety Report 11992726 (Version 11)
Quarter: 2018Q1

REPORT INFORMATION
  Report Type: Report from Study
  Country: CA (occurrence: CA)
  Receive Date: 20160203
  Receipt Date: 20180319
  Transmission Date: 20180508
  Serious: Yes (Other)
  Sender: FDA-Public Use
  Company Number: CA-ROCHE-1581003

PATIENT
  Age: 51 Year
  Sex: Female
  Weight: 116.1 kg

DRUGS (8)
  1. ACTEMRA [Suspect]
     Active Substance: TOCILIZUMAB
     Route: 058
     Dates: start: 2016
  2. PANTOPRAZOLE [Concomitant]
     Active Substance: PANTOPRAZOLE
  3. HYDROMORPHONE [Concomitant]
     Active Substance: HYDROMORPHONE
  4. ACTEMRA [Suspect]
     Active Substance: TOCILIZUMAB
     Indication: RHEUMATOID ARTHRITIS
     Route: 058
     Dates: start: 2016, end: 20180208
  5. RISEDRONATE [Concomitant]
     Active Substance: RISEDRONATE SODIUM
  6. ACTEMRA [Suspect]
     Active Substance: TOCILIZUMAB
     Indication: RHEUMATOID ARTHRITIS
     Route: 042
     Dates: start: 20140326, end: 20160412
  7. PREDNISONE. [Suspect]
     Active Substance: PREDNISONE
     Indication: PRODUCT USED FOR UNKNOWN INDICATION
     Dosage: WEANING OFF
     Route: 065
  8. NAPROXEN. [Concomitant]
     Active Substance: NAPROXEN

REACTIONS (13)
  - Fatigue [Unknown]
  - Arthralgia [Unknown]
  - Injection site pain [Unknown]
  - Nodule [Not Recovered/Not Resolved]
  - Bone pain [Not Recovered/Not Resolved]
  - Skin ulcer [Not Recovered/Not Resolved]
  - Haematochezia [Not Recovered/Not Resolved]
  - Red blood cell sedimentation rate increased [Unknown]
  - Nephrolithiasis [Not Recovered/Not Resolved]
  - Muscular weakness [Recovering/Resolving]
  - Blood pressure decreased [Not Recovered/Not Resolved]
  - Mycobacterium tuberculosis complex test positive [Not Recovered/Not Resolved]
  - Joint swelling [Unknown]

NARRATIVE: CASE EVENT DATE: 2015
